FAERS Safety Report 21585275 (Version 1)
Quarter: 2022Q4

REPORT INFORMATION
  Report Type: Report from Study
  Country: ES (occurrence: ES)
  Receive Date: 20221111
  Receipt Date: 20221111
  Transmission Date: 20230113
  Serious: Yes (Hospitalization)
  Sender: FDA-Public Use
  Company Number: None

PATIENT
  Age: 76 Year
  Sex: Male

DRUGS (2)
  1. TICAGRELOR [Suspect]
     Active Substance: TICAGRELOR
     Indication: Product used for unknown indication
     Dosage: THERAPY END DATE: NASK, TICAGRELOR (8461A)
     Route: 065
     Dates: start: 2022
  2. DOCETAXEL [Suspect]
     Active Substance: DOCETAXEL
     Indication: Product used for unknown indication
     Dosage: DOCETAXEL AUROVIT 20 MG/ML CONCENTRATE FOR SOLUTION AND INFUSION EFG 1 VIAL OF 4 ML, DURATION: 23 DA
     Dates: start: 20220314, end: 20220405

REACTIONS (1)
  - Gastrointestinal haemorrhage [Recovered/Resolved]

NARRATIVE: CASE EVENT DATE: 20220326
